FAERS Safety Report 8317617-4 (Version None)
Quarter: 2012Q2

REPORT INFORMATION
  Report Type: 
  Country: None (occurrence: None)
  Receive Date: 20120427
  Receipt Date: 20110815
  Transmission Date: 20120825
  Serious: No
  Sender: FDA-Public Use
  Company Number: US-GLAXOSMITHKLINE-A0941104A

PATIENT
  Age: 12 Year
  Sex: Female

DRUGS (5)
  1. PREVACID [Concomitant]
  2. LAMOTRGINE [Concomitant]
  3. KEPPRA [Concomitant]
  4. NEURONTIN [Concomitant]
  5. ZOFRAN [Suspect]
     Indication: PRODUCT USED FOR UNKNOWN INDICATION
     Dosage: 1TSP THREE TIMES PER DAY
     Route: 048

REACTIONS (1)
  - VOMITING [None]
